FAERS Safety Report 24315974 (Version 1)
Quarter: 2024Q3

REPORT INFORMATION
  Report Type: Spontaneous
  Country: CA (occurrence: CA)
  Receive Date: 20240913
  Receipt Date: 20240913
  Transmission Date: 20241017
  Serious: Yes (Other)
  Sender: AMGEN
  Company Number: CA-AMGEN-CANSP2024178315

PATIENT
  Age: 3 Month
  Sex: Male

DRUGS (1)
  1. RITUXIMAB [Suspect]
     Active Substance: RITUXIMAB
     Indication: Combined immunodeficiency
     Dosage: UNK
     Route: 065

REACTIONS (2)
  - Device related bacteraemia [Unknown]
  - Off label use [Unknown]
